FAERS Safety Report 4841270-5 (Version None)
Quarter: 2005Q4

REPORT INFORMATION
  Report Type: 
  Country: None (occurrence: None)
  Receive Date: 20051130
  Receipt Date: 20051116
  Transmission Date: 20060501
  Serious: Yes (Other)
  Sender: FDA-Public Use
  Company Number: PHBS2005YU16984

PATIENT
  Age: 19 Year
  Sex: Female

DRUGS (3)
  1. LEPONEX [Suspect]
     Indication: PSYCHOTIC DISORDER
     Dosage: 200 MG/D
     Route: 048
     Dates: start: 20050601, end: 20051101
  2. LEPONEX [Suspect]
     Dosage: 75 MG/D
     Route: 048
     Dates: start: 20051101
  3. ANAFRANIL [Concomitant]
     Route: 065

REACTIONS (3)
  - AMENORRHOEA [None]
  - CONSTIPATION [None]
  - HYPERPROLACTINAEMIA [None]
